FAERS Safety Report 23219157 (Version 1)
Quarter: 2023Q4

REPORT INFORMATION
  Report Type: Spontaneous
  Country: CN (occurrence: None)
  Receive Date: 20231122
  Receipt Date: 20231122
  Transmission Date: 20240109
  Serious: Yes (Disabling, Other)
  Sender: FDA-Public Use
  Company Number: 2023A262685

PATIENT
  Age: 72 Year
  Sex: Male
  Weight: 67 kg

DRUGS (10)
  1. CRESTOR [Suspect]
     Active Substance: ROSUVASTATIN CALCIUM
     Indication: Lacunar infarction
     Route: 048
     Dates: start: 20230924, end: 20231002
  2. MEROPENEM [Suspect]
     Active Substance: MEROPENEM
     Indication: Pneumonia
     Route: 041
     Dates: start: 20230924, end: 20231008
  3. TAMSULOSIN HYDROCHLORIDE [Suspect]
     Active Substance: TAMSULOSIN HYDROCHLORIDE
     Indication: Benign prostatic hyperplasia
     Route: 048
     Dates: start: 20230925, end: 20231009
  4. MOXIFLOXACIN HYDROCHLORIDE [Suspect]
     Active Substance: MOXIFLOXACIN HYDROCHLORIDE\MOXIFLOXACIN HYDROCHLORIDE MONOHYDRATE
     Indication: Pneumonia
     Route: 041
     Dates: start: 20230924, end: 20231004
  5. CLOPIDOGREL BISULFATE [Suspect]
     Active Substance: CLOPIDOGREL BISULFATE
     Indication: Lacunar infarction
     Route: 048
     Dates: start: 20230925, end: 20231011
  6. AMLODIPINE BESYLATE [Suspect]
     Active Substance: AMLODIPINE BESYLATE
     Indication: Hypertension
     Route: 048
     Dates: start: 20230925, end: 20231005
  7. REBAMIPIDE [Concomitant]
     Active Substance: REBAMIPIDE
     Indication: Lacunar infarction
     Route: 048
     Dates: start: 20230924, end: 20231024
  8. HYDROTALCITE [Concomitant]
     Active Substance: HYDROTALCITE
     Indication: Lacunar infarction
     Route: 048
     Dates: start: 20230925, end: 20231009
  9. ASPIRIN [Concomitant]
     Active Substance: ASPIRIN
     Indication: Lacunar infarction
     Route: 048
     Dates: start: 20230925, end: 20231009
  10. FINASTERIDE [Concomitant]
     Active Substance: FINASTERIDE
     Indication: Benign prostatic hyperplasia
     Route: 048
     Dates: start: 20230925, end: 20231024

REACTIONS (2)
  - Drug-induced liver injury [Unknown]
  - Hepatic function abnormal [Recovering/Resolving]

NARRATIVE: CASE EVENT DATE: 20230928
